FAERS Safety Report 18208104 (Version 1)
Quarter: 2020Q3

REPORT INFORMATION
  Report Type: Spontaneous
  Country: PT (occurrence: PT)
  Receive Date: 20200828
  Receipt Date: 20200828
  Transmission Date: 20201103
  Serious: Yes (Hospitalization)
  Sender: FDA-Public Use
  Company Number: PT-TEVA-2020-PT-1820363

PATIENT
  Age: 81 Year
  Sex: Female

DRUGS (2)
  1. FUROSEMIDE. [Suspect]
     Active Substance: FUROSEMIDE
     Dosage: 60 MG, ADDITIONAL INFO:40MG + 20MG / DAY
     Route: 048
     Dates: start: 20190217, end: 20190228
  2. AMOXICILINA + ACIDO CLAVULANICO [Suspect]
     Active Substance: AMOXICILLIN\CLAVULANIC ACID
     Dosage: 3 DOSAGE FORMS
     Route: 048
     Dates: start: 20190217, end: 20190228

REACTIONS (2)
  - Rash pruritic [Recovered/Resolved]
  - Rash [Recovered/Resolved]

NARRATIVE: CASE EVENT DATE: 20190227
